FAERS Safety Report 10117863 (Version 2)
Quarter: 2014Q2

REPORT INFORMATION
  Report Type: Spontaneous
  Country: ES (occurrence: ES)
  Receive Date: 20140426
  Receipt Date: 20140604
  Transmission Date: 20141212
  Serious: Yes (Other)
  Sender: FDA-Public Use
  Company Number: PHHY2014ES044892

PATIENT
  Age: 55 Year
  Sex: Female

DRUGS (3)
  1. AFINITOR [Suspect]
     Indication: BREAST CANCER
     Dosage: 10 MG, DAILY
     Route: 048
  2. AFINITOR [Suspect]
     Indication: OFF LABEL USE
     Dosage: UNK
     Route: 048
     Dates: start: 201311
  3. EXEMESTANE [Concomitant]
     Indication: BREAST CANCER
     Dosage: 25 MG, DAILY
     Route: 048
     Dates: start: 201311

REACTIONS (5)
  - Lymphatic disorder [Not Recovered/Not Resolved]
  - Lymphoedema [Unknown]
  - Pain in extremity [Unknown]
  - Oedema peripheral [Unknown]
  - Wrong technique in drug usage process [Unknown]
